FAERS Safety Report 5370739-2 (Version None)
Quarter: 2007Q2

REPORT INFORMATION
  Report Type: 
  Country: None (occurrence: None)
  Receive Date: 20070618
  Receipt Date: 20070418
  Transmission Date: 20071010
  Serious: Yes (Other)
  Sender: FDA-Public Use
  Company Number: PHEH2006US14733

PATIENT
  Age: 62 Year
  Sex: Male

DRUGS (7)
  1. GLEEVEC [Suspect]
     Indication: GASTROINTESTINAL STROMAL TUMOUR
     Dosage: ORAL : 400 MG, QD, ORAL
     Route: 048
     Dates: start: 20030101, end: 20040101
  2. GLEEVEC [Suspect]
     Indication: GASTROINTESTINAL STROMAL TUMOUR
     Dosage: ORAL : 400 MG, QD, ORAL
     Route: 048
     Dates: start: 20061201
  3. METHADONE HCL [Concomitant]
  4. HYDROCODONE (HYDROCODONE) [Concomitant]
  5. ENALAPRIL (ENALAPRIL) [Concomitant]
  6. DILTIAZEM [Concomitant]
  7. METFORMIN HCL [Concomitant]

REACTIONS (5)
  - ABDOMINAL PAIN UPPER [None]
  - DYSPEPSIA [None]
  - GASTROINTESTINAL STROMAL TUMOUR [None]
  - MALIGNANT NEOPLASM PROGRESSION [None]
  - NAUSEA [None]
